FAERS Safety Report 18342582 (Version 2)
Quarter: 2020Q4

REPORT INFORMATION
  Report Type: Spontaneous
  Country: FR (occurrence: FR)
  Receive Date: 20201005
  Receipt Date: 20201009
  Transmission Date: 20210113
  Serious: Yes (Hospitalization, Disabling)
  Sender: FDA-Public Use
  Company Number: FR-TEVA-2020-FR-1835331

PATIENT
  Age: 61 Year
  Sex: Male

DRUGS (7)
  1. VORICONAZOLE. [Suspect]
     Active Substance: VORICONAZOLE
     Indication: ASPERGILLUS INFECTION
     Dosage: 12 MG/KG DAILY; LOADING DOSE
     Route: 042
  2. PREDNISONE. [Suspect]
     Active Substance: PREDNISONE
     Indication: MASS
     Dosage: 20-70MG DAILY FOR 6 MONTHS
     Route: 048
  3. AMBISOME [Suspect]
     Active Substance: AMPHOTERICIN B
     Dosage: 3 MG/KG DAILY; DAILY
     Route: 065
  4. VORICONAZOLE. [Suspect]
     Active Substance: VORICONAZOLE
     Indication: ASPERGILLUS INFECTION
     Dosage: 400 MG/KG DAILY; DAILY
     Route: 048
  5. AMBISOME [Suspect]
     Active Substance: AMPHOTERICIN B
     Indication: EVIDENCE BASED TREATMENT
     Dosage: 5 MG/KG DAILY; DAILY
     Route: 065
  6. VORICONAZOLE. [Suspect]
     Active Substance: VORICONAZOLE
     Dosage: 8 MG/KG DAILY;
     Route: 042
  7. METHYLPREDNISOLONE. [Suspect]
     Active Substance: METHYLPREDNISOLONE
     Indication: MASS
     Dosage: 5 BOLUSES OF 750-100MG DAILY FOR 3 DAYS.
     Route: 065

REACTIONS (8)
  - Blindness unilateral [Not Recovered/Not Resolved]
  - Nephropathy toxic [Unknown]
  - Paraesthesia [Unknown]
  - Cranial nerve disorder [Not Recovered/Not Resolved]
  - Aspergillus infection [Recovering/Resolving]
  - Condition aggravated [Recovering/Resolving]
  - Osteolysis [Recovered/Resolved]
  - Cerebral aspergillosis [Recovered/Resolved]
